FAERS Safety Report 23093459 (Version 1)
Quarter: 2023Q4

REPORT INFORMATION
  Report Type: Spontaneous
  Country: US (occurrence: None)
  Receive Date: 20231023
  Receipt Date: 20231023
  Transmission Date: 20240110
  Serious: No
  Sender: FDA-Public Use
  Company Number: 2023A238042

PATIENT
  Age: 38 Year
  Sex: Female
  Weight: 84 kg

DRUGS (11)
  1. CRESTOR [Suspect]
     Active Substance: ROSUVASTATIN CALCIUM
     Indication: Product used for unknown indication
     Route: 048
  2. HYQVIA [Suspect]
     Active Substance: HUMAN IMMUNOGLOBULIN G\HYALURONIDASE (HUMAN RECOMBINANT)
     Indication: Immunodeficiency
     Route: 058
     Dates: start: 20200401
  3. VITAMIN D3 [Concomitant]
     Active Substance: CHOLECALCIFEROL
  4. EPINEPHRINE [Concomitant]
     Active Substance: EPINEPHRINE
  5. SYNTHROID [Concomitant]
     Active Substance: LEVOTHYROXINE SODIUM
  6. ACETAMINOPHEN [Concomitant]
     Active Substance: ACETAMINOPHEN
  7. LORATADINE [Concomitant]
     Active Substance: LORATADINE
  8. SODIUM CHLORIDE [Concomitant]
     Active Substance: SODIUM CHLORIDE
  9. LIDOCAINE [Concomitant]
     Active Substance: LIDOCAINE
  10. SODIUM CHLORIDE [Concomitant]
     Active Substance: SODIUM CHLORIDE
  11. CLARITIN [Concomitant]
     Active Substance: LORATADINE

REACTIONS (5)
  - Sinusitis [Unknown]
  - COVID-19 [Unknown]
  - Abdominal discomfort [Unknown]
  - Respiratory tract infection [Unknown]
  - Sensitive skin [Unknown]
